FAERS Safety Report 9433854 (Version 1)
Quarter: 2013Q3

REPORT INFORMATION
  Report Type: Spontaneous
  Country: US (occurrence: US)
  Receive Date: 20130731
  Receipt Date: 20130731
  Transmission Date: 20140515
  Serious: No
  Sender: FDA-Public Use
  Company Number: US-ASTRAZENECA-2013SE51231

PATIENT
  Age: 87 Year
  Sex: Female

DRUGS (1)
  1. SEROQUEL [Suspect]
     Indication: INSOMNIA
     Dosage: DAILY
     Route: 048
     Dates: start: 20130704

REACTIONS (2)
  - Tremor [Unknown]
  - Off label use [Unknown]
